FAERS Safety Report 25067450 (Version 2)
Quarter: 2025Q2

REPORT INFORMATION
  Report Type: Report from Study
  Country: US (occurrence: US)
  Receive Date: 20250312
  Receipt Date: 20250410
  Transmission Date: 20250717
  Serious: Yes (Hospitalization, Other)
  Sender: ARDELYX
  Company Number: US-ARDELYX-2025ARDX001500

PATIENT
  Sex: Male

DRUGS (3)
  1. XPHOZAH [Suspect]
     Active Substance: TENAPANOR HYDROCHLORIDE
     Indication: Hyperphosphataemia
     Route: 065
     Dates: start: 202502, end: 202502
  2. XPHOZAH [Suspect]
     Active Substance: TENAPANOR HYDROCHLORIDE
     Indication: Chronic kidney disease
  3. VELPHORO [Suspect]
     Active Substance: SUCROFERRIC OXYHYDROXIDE
     Indication: Product used for unknown indication
     Route: 065
     Dates: end: 202502

REACTIONS (12)
  - Rectal haemorrhage [Recovered/Resolved]
  - Abnormal faeces [Unknown]
  - Muscle spasms [None]
  - Feeling abnormal [Unknown]
  - Diarrhoea [Recovered/Resolved]
  - Gastric ulcer [Unknown]
  - Gastrointestinal haemorrhage [None]
  - Renal failure [Unknown]
  - Fall [Unknown]
  - Faeces discoloured [Unknown]
  - Constipation [Unknown]
  - Influenza [Unknown]
